FAERS Safety Report 6806248-0 (Version None)
Quarter: 2010Q2

REPORT INFORMATION
  Report Type: 
  Country: None (occurrence: None)
  Receive Date: 20100629
  Receipt Date: 20080111
  Transmission Date: 20101027
  Serious: No
  Sender: FDA-Public Use
  Company Number: US-PFIZER INC-2008004388

PATIENT
  Sex: Female

DRUGS (2)
  1. ARTHROTEC [Suspect]
  2. CONTRACEPTIVE, UNSPECIFIED [Concomitant]

REACTIONS (2)
  - DYSMENORRHOEA [None]
  - MENORRHAGIA [None]
